FAERS Safety Report 24862405 (Version 2)
Quarter: 2025Q1

REPORT INFORMATION
  Report Type: Spontaneous
  Country: US (occurrence: US)
  Receive Date: 20250120
  Receipt Date: 20250207
  Transmission Date: 20250408
  Serious: No
  Sender: IPSEN BIOPHARMACEUTICALS, INC.
  Company Number: US-IPSEN Group, Research and Development-2025-00726

PATIENT
  Age: 65 Year
  Sex: Male
  Weight: 77.11 kg

DRUGS (12)
  1. TAZVERIK [Suspect]
     Active Substance: TAZEMETOSTAT HYDROBROMIDE
     Indication: B-cell small lymphocytic lymphoma
     Route: 048
     Dates: start: 20241228, end: 20241228
  2. TAZVERIK [Suspect]
     Active Substance: TAZEMETOSTAT HYDROBROMIDE
     Route: 048
     Dates: start: 20250102, end: 20250102
  3. TAZVERIK [Suspect]
     Active Substance: TAZEMETOSTAT HYDROBROMIDE
     Route: 048
  4. CYCLOPHOSPHAMIDE [Concomitant]
     Active Substance: CYCLOPHOSPHAMIDE
  5. VINCRISTINE SULFATE [Concomitant]
     Active Substance: VINCRISTINE SULFATE
  6. NIVESTYM [Concomitant]
     Active Substance: FILGRASTIM-AAFI
  7. BENDAMUSTINE [Concomitant]
     Active Substance: BENDAMUSTINE
  8. GAZYVA [Concomitant]
     Active Substance: OBINUTUZUMAB
  9. LOMOTIL [Concomitant]
     Active Substance: ATROPINE SULFATE\DIPHENOXYLATE HYDROCHLORIDE
  10. ONDANSETRON [Concomitant]
     Active Substance: ONDANSETRON
  11. RITUXAN [Concomitant]
     Active Substance: RITUXIMAB
  12. TRAMADOL [Concomitant]
     Active Substance: TRAMADOL

REACTIONS (3)
  - Muscle spasms [Unknown]
  - Vomiting [Unknown]
  - Diarrhoea [Unknown]

NARRATIVE: CASE EVENT DATE: 20241228
